FAERS Safety Report 8902152 (Version 3)
Quarter: 2013Q1

REPORT INFORMATION
  Report Type: Spontaneous
  Country: US (occurrence: US)
  Receive Date: 20121112
  Receipt Date: 20130122
  Transmission Date: 20140127
  Serious: No
  Sender: FDA-Public Use
  Company Number: US-009507513-1211USA004605

PATIENT
  Age: 84 None
  Sex: Female

DRUGS (4)
  1. COSOPT [Suspect]
     Indication: OPEN ANGLE GLAUCOMA
     Dosage: 4 GTT, BID
     Route: 031
     Dates: start: 2012
  2. COSOPT [Suspect]
     Dosage: 4 GTT, BID
     Route: 031
     Dates: start: 20121101
  3. TRUSOPT [Suspect]
     Indication: INTRAOCULAR PRESSURE INCREASED
     Dosage: UNK
     Dates: start: 2012, end: 2012
  4. ARMOUR THYROID TABLETS [Concomitant]

REACTIONS (8)
  - Drug ineffective [Unknown]
  - Hypothermia [Not Recovered/Not Resolved]
  - Alopecia [Not Recovered/Not Resolved]
  - Gastrointestinal disorder [Not Recovered/Not Resolved]
  - Fatigue [Not Recovered/Not Resolved]
  - Dysgeusia [Not Recovered/Not Resolved]
  - Dry mouth [Not Recovered/Not Resolved]
  - Dizziness [Not Recovered/Not Resolved]
